FAERS Safety Report 9995646 (Version 1)
Quarter: 2014Q1

REPORT INFORMATION
  Report Type: Spontaneous
  Country: US (occurrence: None)
  Receive Date: 20140304
  Receipt Date: 20140304
  Transmission Date: 20141002
  Serious: Yes (Hospitalization, Other)
  Sender: FDA-Public Use
  Company Number: RB-54675-2013

PATIENT
  Sex: Female

DRUGS (2)
  1. SUBUTEX [Suspect]
     Indication: PRODUCT USED FOR UNKNOWN INDICATION
     Route: 064
     Dates: start: 2012, end: 20121112
  2. NICOTINE [Suspect]
     Indication: PRODUCT USED FOR UNKNOWN INDICATION
     Dosage: 5 CIGARETTES DAILY TRANSPLACENTAL)
     Route: 064
     Dates: start: 2012, end: 20121112

REACTIONS (3)
  - Maternal drugs affecting foetus [None]
  - Foetal exposure during pregnancy [None]
  - Drug withdrawal syndrome neonatal [None]
